FAERS Safety Report 4825060-5 (Version None)
Quarter: 2005Q4

REPORT INFORMATION
  Report Type: 
  Country: None (occurrence: None)
  Receive Date: 20051109
  Receipt Date: 20051109
  Transmission Date: 20060501
  Serious: Yes (Life-Threatening)
  Sender: FDA-Public Use
  Company Number: None

PATIENT
  Age: 83 Year
  Sex: Female

DRUGS (2)
  1. CARVEDIOL [Suspect]
     Indication: ATRIAL FIBRILLATION
     Dosage: 3.125MG   BID   PO
     Route: 048
     Dates: start: 20050707, end: 20050708
  2. CARVEDIOL [Suspect]
     Indication: HYPERTENSION
     Dosage: 3.125MG   BID   PO
     Route: 048
     Dates: start: 20050707, end: 20050708

REACTIONS (2)
  - BRADYCARDIA [None]
  - THERAPY NON-RESPONDER [None]
